FAERS Safety Report 8908486 (Version 1)
Quarter: 2012Q4

REPORT INFORMATION
  Report Type: 
  Country: GB (occurrence: GB)
  Receive Date: 20121114
  Receipt Date: 20121114
  Transmission Date: 20130627
  Serious: Yes (Other)
  Sender: FDA-Public Use
  Company Number: GB-TEVA-368006ISR

PATIENT
  Age: 62 Year
  Sex: Female
  Weight: 74.09 kg

DRUGS (10)
  1. TRIMETHOPRIM [Suspect]
     Dates: start: 20121018
  2. NAPROXEN [Concomitant]
     Dates: start: 20120803
  3. PIROXICAM [Concomitant]
     Dates: start: 20120803
  4. GAVISCON ADVANCE [Concomitant]
     Dates: start: 20120914, end: 20120926
  5. HYDROXOCOBALAMIN [Concomitant]
     Dates: start: 20120914, end: 20120915
  6. OMEPRAZOLE [Concomitant]
     Dates: start: 20120914, end: 20121012
  7. PARACETAMOL [Concomitant]
     Dates: start: 20121012
  8. INADINE [Concomitant]
     Dates: start: 20121018, end: 20121019
  9. NYSTAN [Concomitant]
     Dates: start: 20121018
  10. POVIDONE-IODINE [Concomitant]
     Dates: start: 20121018

REACTIONS (1)
  - Tremor [Recovered/Resolved]
